FAERS Safety Report 19824623 (Version 1)
Quarter: 2021Q3

REPORT INFORMATION
  Report Type: Spontaneous
  Country: US (occurrence: US)
  Receive Date: 20210913
  Receipt Date: 20210913
  Transmission Date: 20211014
  Serious: Yes (Hospitalization)
  Sender: FDA-Public Use
  Company Number: None

PATIENT
  Age: 35 Year
  Sex: Female
  Weight: 80.3 kg

DRUGS (15)
  1. PNV WITH IRON [Concomitant]
     Dates: start: 20210908, end: 20210910
  2. BETAMETHASONE ACETATE?BETAMETHASONE SODIUM PHOSPHATE [Concomitant]
     Active Substance: BETAMETHASONE ACETATE\BETAMETHASONE SODIUM PHOSPHATE
     Dates: start: 20210907, end: 20210907
  3. FAMOTIDINE. [Concomitant]
     Active Substance: FAMOTIDINE
     Dates: start: 20210907, end: 20210907
  4. TERBUTALINE [Concomitant]
     Active Substance: TERBUTALINE
     Dates: start: 20210907, end: 20210907
  5. OXYCODONE [Concomitant]
     Active Substance: OXYCODONE
     Dates: start: 20210909, end: 20210909
  6. ACETAMINOPHEN. [Concomitant]
     Active Substance: ACETAMINOPHEN
     Dates: start: 20210907, end: 20210910
  7. CITRIC ACID?SODIUM CITRATE [Concomitant]
     Dates: start: 20210907, end: 20210907
  8. OXYTOCIN. [Concomitant]
     Active Substance: OXYTOCIN
     Dates: start: 20210907, end: 20210907
  9. DOCUSATE SODIUM. [Concomitant]
     Active Substance: DOCUSATE SODIUM
     Dates: start: 20210908, end: 20210910
  10. GUAR GUM [Concomitant]
     Active Substance: GUAR GUM
     Dates: start: 20210909, end: 20210909
  11. SENNA [Concomitant]
     Active Substance: SENNA LEAF\SENNOSIDES\SENNOSIDES A AND B
     Dates: start: 20210909, end: 20210909
  12. KETOROLAC [Concomitant]
     Active Substance: KETOROLAC TROMETHAMINE
     Dates: start: 20210907, end: 20210908
  13. REGEN?COV [Suspect]
     Active Substance: CASIRIVIMAB\IMDEVIMAB
     Indication: SARS-COV-2 TEST POSITIVE
     Dosage: ?          OTHER FREQUENCY:ONCE;?
     Route: 042
     Dates: start: 20210909, end: 20210909
  14. METOCLOPRAMIDE. [Concomitant]
     Active Substance: METOCLOPRAMIDE
     Dates: start: 20210907, end: 20210907
  15. SIMETHICONE (DIMETHICONE) [Concomitant]
     Active Substance: DIMETHICONE
     Dates: start: 20210908, end: 20210909

REACTIONS (5)
  - Chills [None]
  - Hypoxia [None]
  - Tremor [None]
  - Dyspnoea [None]
  - Infusion related reaction [None]

NARRATIVE: CASE EVENT DATE: 20210909
